FAERS Safety Report 9887472 (Version 1)
Quarter: 2014Q1

REPORT INFORMATION
  Report Type: Spontaneous
  Country: US (occurrence: US)
  Receive Date: 20140211
  Receipt Date: 20140211
  Transmission Date: 20141002
  Serious: No
  Sender: FDA-Public Use
  Company Number: US-B.I. PHARMACEUTICALS,INC./RIDGEFIELD-2014-BI-05213BP

PATIENT
  Age: 68 Year
  Sex: Female

DRUGS (7)
  1. COMBIVENT [Suspect]
     Indication: CHRONIC OBSTRUCTIVE PULMONARY DISEASE
     Dosage: DOSE PER APPLICATION: 20 MCG / 100 MCG; DAILY DOSE: 80MCG/400MCG
     Route: 055
     Dates: start: 20140106, end: 20140106
  2. PRILOSEC [Concomitant]
     Indication: DYSPEPSIA
     Dosage: 20 MG
     Route: 048
     Dates: start: 2011
  3. CRESTOR [Concomitant]
     Indication: BLOOD CHOLESTEROL INCREASED
     Dosage: 10 MG
     Route: 048
     Dates: start: 2004
  4. MAXIDE [Concomitant]
     Indication: MENIERE^S DISEASE
     Dosage: 75 MG
     Route: 048
     Dates: start: 1981
  5. COUMADIN [Concomitant]
     Indication: THROMBOSIS
     Dosage: 4 MG
     Route: 048
     Dates: start: 2013
  6. KLONIPIN [Concomitant]
     Indication: MENIERE^S DISEASE
     Dosage: 3 MG
     Route: 048
     Dates: start: 201401
  7. WELLBUTRIN [Concomitant]
     Indication: STRESS
     Dosage: 225 MG
     Route: 048
     Dates: start: 2011

REACTIONS (2)
  - Vertigo [Recovered/Resolved]
  - Choking [Recovered/Resolved]
